FAERS Safety Report 9231890 (Version 2)
Quarter: 2013Q2

REPORT INFORMATION
  Report Type: Spontaneous
  Country: US (occurrence: US)
  Receive Date: 20130415
  Receipt Date: 20130430
  Transmission Date: 20140414
  Serious: Yes (Death, Other)
  Sender: FDA-Public Use
  Company Number: US-WATSON-2013-06147

PATIENT
  Age: 55 Year
  Sex: Female

DRUGS (6)
  1. HYDROXYCHLOROQUINE SULFATE (WATSON LABORATORIES) [Suspect]
     Indication: SYSTEMIC LUPUS ERYTHEMATOSUS
     Dosage: 400 MG, DAILY
     Route: 065
  2. PREDNISONE [Concomitant]
     Indication: SYSTEMIC LUPUS ERYTHEMATOSUS
     Dosage: 5 MG, DAILY
     Route: 065
  3. ISORDIL [Concomitant]
     Indication: CARDIOVASCULAR DISORDER
     Dosage: 20 MG, TID
     Route: 065
  4. HYDRALAZINE [Concomitant]
     Indication: CARDIOVASCULAR DISORDER
     Dosage: 50 MG, TID
     Route: 065
  5. COREG [Concomitant]
     Indication: CARDIOVASCULAR DISORDER
     Dosage: 6.25 MG, BID
     Route: 065
  6. ASPIRIN [Concomitant]
     Indication: CARDIOVASCULAR DISORDER
     Dosage: 325 MG, DAILY
     Route: 065

REACTIONS (3)
  - Cardiac failure congestive [Fatal]
  - Systolic dysfunction [Fatal]
  - Renal failure acute [Fatal]
